APPROVED DRUG PRODUCT: MONTELUKAST SODIUM
Active Ingredient: MONTELUKAST SODIUM
Strength: EQ 10MG BASE
Dosage Form/Route: TABLET;ORAL
Application: A091576 | Product #001
Applicant: STRIDES PHARMA INTERNATIONAL AG
Approved: Aug 3, 2012 | RLD: No | RS: No | Type: DISCN